FAERS Safety Report 24142517 (Version 1)
Quarter: 2024Q3

REPORT INFORMATION
  Report Type: Report from Study
  Country: US (occurrence: None)
  Receive Date: 20240726
  Receipt Date: 20240726
  Transmission Date: 20241017
  Serious: Yes (Other)
  Sender: ASTRAZENECA
  Company Number: 2021A005438

PATIENT
  Age: 57 Year
  Sex: Female

DRUGS (1)
  1. FASENRA [Suspect]
     Active Substance: BENRALIZUMAB
     Indication: Asthma
     Dosage: INJECT 30 MG (1 PEN) UNDER THE SKIN AT WEEK 8 THEN EVERY 8 WEEKS THEREAFTER
     Route: 058
     Dates: start: 202001

REACTIONS (4)
  - Fall [Unknown]
  - Shoulder fracture [Unknown]
  - Humerus fracture [Unknown]
  - Back pain [Unknown]
